FAERS Safety Report 6876468-8 (Version None)
Quarter: 2010Q3

REPORT INFORMATION
  Report Type: 
  Country: None (occurrence: None)
  Receive Date: 20100727
  Receipt Date: 20100726
  Transmission Date: 20110219
  Serious: Yes (Hospitalization, Other)
  Sender: FDA-Public Use
  Company Number: IT-ROXANE LABORATORIES, INC.-2010-RO-00902RO

PATIENT
  Age: 42 Year
  Sex: Male

DRUGS (8)
  1. RAMIPRIL [Suspect]
  2. FUROSEMIDE [Suspect]
  3. INSULIN LISPRO [Suspect]
  4. INSULIN GLARGINE [Suspect]
  5. GABAPENTIN [Suspect]
  6. ASPIRIN [Suspect]
  7. ALLOPURINOL [Suspect]
  8. EZETIMIBE/SIMVASTATIN [Suspect]
     Indication: DYSLIPIDAEMIA

REACTIONS (6)
  - DENERVATION ATROPHY [None]
  - GAIT DISTURBANCE [None]
  - MUSCULAR WEAKNESS [None]
  - RENAL FAILURE ACUTE [None]
  - RHABDOMYOLYSIS [None]
  - SCIATIC NERVE NEUROPATHY [None]
